FAERS Safety Report 23111632 (Version 5)
Quarter: 2023Q4

REPORT INFORMATION
  Report Type: Report from Study
  Country: BR (occurrence: BR)
  Receive Date: 20231026
  Receipt Date: 20231214
  Transmission Date: 20240110
  Serious: Yes (Other)
  Sender: FDA-Public Use
  Company Number: BR-002147023-NVSC2023BR135263

PATIENT
  Age: 71 Year
  Sex: Female

DRUGS (7)
  1. KISQALI [Suspect]
     Active Substance: RIBOCICLIB
     Indication: Breast cancer
     Dosage: UNK
     Route: 065
     Dates: start: 20230609
  2. KISQALI [Suspect]
     Active Substance: RIBOCICLIB
     Dosage: UNK
     Route: 065
  3. KISQALI [Suspect]
     Active Substance: RIBOCICLIB
     Dosage: UNK
     Route: 065
  4. KISQALI [Suspect]
     Active Substance: RIBOCICLIB
     Dosage: UNK
     Route: 065
  5. KISQALI [Suspect]
     Active Substance: RIBOCICLIB
     Dosage: 3 DOSAGE FORM
     Route: 065
  6. KISQALI [Suspect]
     Active Substance: RIBOCICLIB
     Dosage: UNK
     Route: 065
  7. EXEMESTANE [Concomitant]
     Active Substance: EXEMESTANE
     Indication: Product used for unknown indication
     Dosage: UNK
     Route: 065

REACTIONS (45)
  - Metastases to bone [Unknown]
  - Deafness [Unknown]
  - Metastasis [Recovering/Resolving]
  - COVID-19 [Recovered/Resolved]
  - Skin hypertrophy [Unknown]
  - Rash [Unknown]
  - Memory impairment [Not Recovered/Not Resolved]
  - Discharge [Unknown]
  - Rhinorrhoea [Unknown]
  - Rash macular [Recovered/Resolved]
  - Lacrimation increased [Unknown]
  - Pruritus [Unknown]
  - Influenza [Recovered/Resolved]
  - Hypersensitivity [Not Recovered/Not Resolved]
  - Sluggishness [Recovered/Resolved]
  - Vision blurred [Recovering/Resolving]
  - Abdominal discomfort [Unknown]
  - Hiatus hernia [Unknown]
  - Reflux gastritis [Unknown]
  - Discouragement [Recovered/Resolved]
  - Decreased immune responsiveness [Recovered/Resolved]
  - Dengue fever [Recovered/Resolved]
  - Hypersensitivity [Recovered/Resolved]
  - Visual impairment [Not Recovered/Not Resolved]
  - Hypersensitivity [Recovered/Resolved]
  - Urticaria [Recovered/Resolved]
  - Malaise [Recovered/Resolved]
  - Eating disorder [Recovered/Resolved]
  - Hypersomnia [Recovered/Resolved]
  - Fatigue [Recovered/Resolved]
  - Erythema [Recovering/Resolving]
  - Pruritus [Recovered/Resolved]
  - Neutrophil count decreased [Unknown]
  - Abdominal pain upper [Unknown]
  - White blood cell count decreased [Unknown]
  - Asthenia [Recovered/Resolved]
  - Constipation [Recovered/Resolved]
  - Decreased appetite [Recovered/Resolved]
  - Platelet count decreased [Unknown]
  - Influenza [Unknown]
  - Dizziness [Recovered/Resolved]
  - Nausea [Recovered/Resolved]
  - Red blood cell count decreased [Unknown]
  - Cyanosis [Recovering/Resolving]
  - Malaise [Unknown]

NARRATIVE: CASE EVENT DATE: 20231205
